FAERS Safety Report 7202393-9 (Version None)
Quarter: 2010Q4

REPORT INFORMATION
  Report Type: 
  Country: None (occurrence: None)
  Receive Date: 20101229
  Receipt Date: 20101216
  Transmission Date: 20110411
  Serious: Yes (Other)
  Sender: FDA-Public Use
  Company Number: PHHY2010GB85549

PATIENT
  Age: 42 Year
  Sex: Female

DRUGS (6)
  1. CARBOPLATIN [Suspect]
     Indication: METASTATIC CARCINOMA OF THE BLADDER
     Dosage: UNK
     Dates: start: 20100812
  2. CYCLIZINE [Concomitant]
     Indication: NAUSEA
     Dosage: 50 MG, UNK
     Route: 048
  3. GENTAMICIN [Concomitant]
     Indication: NEUTROPENIC SEPSIS
     Dosage: UNK
     Route: 042
  4. MEROPENEM [Concomitant]
     Indication: NEUTROPENIC SEPSIS
     Dosage: 500 MG, UNK
     Route: 042
  5. METOCLOPRAMIDE [Concomitant]
     Indication: NAUSEA
     Dosage: 80 MG, UNK
     Route: 058
  6. MST UNICONTINUS [Concomitant]
     Indication: PAIN
     Dosage: UNK
     Route: 048

REACTIONS (2)
  - HYPOPHOSPHATAEMIA [None]
  - NEOPLASM PROGRESSION [None]
